FAERS Safety Report 20847971 (Version 1)
Quarter: 2022Q2

REPORT INFORMATION
  Report Type: Spontaneous
  Country: US (occurrence: US)
  Receive Date: 20220519
  Receipt Date: 20220519
  Transmission Date: 20220721
  Serious: No
  Sender: FDA-Public Use
  Company Number: US-HBP-2022US026466

PATIENT
  Sex: Female

DRUGS (1)
  1. VALCHLOR [Suspect]
     Active Substance: MECHLORETHAMINE
     Indication: Cutaneous T-cell lymphoma
     Dosage: UNK, ONCE EVERY OTHER DAY AND SLOWLY INCREASE TO DAILY
     Route: 061
     Dates: start: 202004

REACTIONS (2)
  - Skin discolouration [Not Recovered/Not Resolved]
  - Off label use [Unknown]
